FAERS Safety Report 10532856 (Version 3)
Quarter: 2015Q3

REPORT INFORMATION
  Report Type: Report from Study
  Country: GB (occurrence: GB)
  Receive Date: 20141022
  Receipt Date: 20150729
  Transmission Date: 20151125
  Serious: Yes (Hospitalization, Other)
  Sender: FDA-Public Use
  Company Number: GB-ROCHE-1444801

PATIENT
  Age: 91 Year
  Sex: Male

DRUGS (8)
  1. RANIBIZUMAB [Suspect]
     Active Substance: RANIBIZUMAB
     Indication: NEOVASCULAR AGE-RELATED MACULAR DEGENERATION
     Dosage: LAST DOSE PRIOR TO ADVERSE EVENT: 18/FEB/2014
     Route: 050
     Dates: start: 20121108
  2. AMLODIPINE [Concomitant]
     Active Substance: AMLODIPINE BESYLATE
     Route: 065
     Dates: start: 20060612
  3. RANIBIZUMAB [Suspect]
     Active Substance: RANIBIZUMAB
     Route: 050
     Dates: start: 20140218, end: 20140218
  4. TOLBUTAMIDE. [Concomitant]
     Active Substance: TOLBUTAMIDE
     Route: 065
     Dates: start: 20121108
  5. PIOGLITAZONE. [Concomitant]
     Active Substance: PIOGLITAZONE
     Route: 065
     Dates: start: 20050506
  6. TAMSULOSIN [Concomitant]
     Active Substance: TAMSULOSIN
  7. ROSUVASTATIN [Concomitant]
     Active Substance: ROSUVASTATIN
     Route: 065
     Dates: start: 20070430
  8. RAMIPRIL. [Concomitant]
     Active Substance: RAMIPRIL
     Route: 065
     Dates: start: 20040428

REACTIONS (3)
  - Acute kidney injury [Recovering/Resolving]
  - Cerebrovascular accident [Recovered/Resolved]
  - Punctate keratitis [Unknown]

NARRATIVE: CASE EVENT DATE: 20140318
